FAERS Safety Report 5218715-4 (Version None)
Quarter: 2007Q1

REPORT INFORMATION
  Report Type: 
  Country: None (occurrence: None)
  Receive Date: 20070122
  Receipt Date: 20070110
  Transmission Date: 20070707
  Serious: Yes (Hospitalization)
  Sender: FDA-Public Use
  Company Number: 232993

PATIENT
  Age: 71 Year
  Sex: Female

DRUGS (7)
  1. BEVACIZUMAB [Suspect]
     Indication: BREAST CANCER METASTATIC
     Dosage: 700 MG, INTRAVENOUS
     Route: 042
     Dates: start: 20061026, end: 20061116
  2. PACLITAXEL [Suspect]
     Indication: BREAST CANCER METASTATIC
     Dosage: 437 MG, INTRAVENOUS
     Route: 042
     Dates: start: 20061026, end: 20061116
  3. G-CSF (FILGRASTIM) [Concomitant]
  4. METFORMIN HCL [Concomitant]
  5. NPH INSULIN [Concomitant]
  6. PROPACET (ACETAMINOPHEN, PROPOXYPHENE NAPSYLATE) [Concomitant]
  7. SENNOSIDE A+B (SENNOSIDES) [Concomitant]

REACTIONS (20)
  - ALDOLASE INCREASED [None]
  - ANTINUCLEAR ANTIBODY POSITIVE [None]
  - ARTHRITIS [None]
  - BLOOD GLUCOSE INCREASED [None]
  - BLOOD IMMUNOGLOBULIN G INCREASED [None]
  - DECREASED APPETITE [None]
  - DYSPNOEA [None]
  - GLYCOSYLATED HAEMOGLOBIN INCREASED [None]
  - HAEMOGLOBIN DECREASED [None]
  - HEADACHE [None]
  - MUSCULOSKELETAL PAIN [None]
  - OEDEMA PERIPHERAL [None]
  - PAIN IN EXTREMITY [None]
  - PAIN IN JAW [None]
  - PARVOVIRUS B19 SEROLOGY POSITIVE [None]
  - POLYARTHRITIS [None]
  - PYREXIA [None]
  - RETICULOCYTE COUNT INCREASED [None]
  - RHEUMATOID ARTHRITIS [None]
  - SYNOVITIS [None]
